FAERS Safety Report 8537353-9 (Version None)
Quarter: 2012Q3

REPORT INFORMATION
  Report Type: 
  Country: None (occurrence: None)
  Receive Date: 20120725
  Receipt Date: 20120723
  Transmission Date: 20120928
  Serious: No
  Sender: FDA-Public Use
  Company Number: US-BAYER-2012-074299

PATIENT

DRUGS (1)
  1. FINACEA [Suspect]

REACTIONS (1)
  - EYE DISORDER [None]
